FAERS Safety Report 24180909 (Version 1)
Quarter: 2024Q3

REPORT INFORMATION
  Report Type: Report from Study
  Country: CA (occurrence: None)
  Receive Date: 20240806
  Receipt Date: 20240806
  Transmission Date: 20241017
  Serious: Yes (Other)
  Sender: ASTRAZENECA
  Company Number: 2021A794621

PATIENT
  Sex: Female

DRUGS (3)
  1. FASENRA [Suspect]
     Active Substance: BENRALIZUMAB
     Indication: Asthma
     Dosage: 30.0MG UNKNOWN
     Route: 058
     Dates: start: 20200616
  2. VENTOLIN [Concomitant]
     Active Substance: ALBUTEROL SULFATE
     Route: 065
  3. SYMBICORT [Concomitant]
     Active Substance: BUDESONIDE\FORMOTEROL FUMARATE DIHYDRATE
     Dosage: 200/6 MCG, 2 PUFFS TID.
     Route: 065

REACTIONS (8)
  - Cerebrovascular accident [Unknown]
  - Cardiac disorder [Unknown]
  - Memory impairment [Unknown]
  - Stress [Unknown]
  - Asthma [Unknown]
  - Malaise [Unknown]
  - Anxiety [Unknown]
  - Drug ineffective [Unknown]
